FAERS Safety Report 4418090-9 (Version None)
Quarter: 2004Q3

REPORT INFORMATION
  Report Type: 
  Country: None (occurrence: None)
  Receive Date: 20040730
  Receipt Date: 20040726
  Transmission Date: 20050211
  Serious: Yes (Hospitalization)
  Sender: FDA-Public Use
  Company Number: 2003CG00460

PATIENT
  Age: 71 Year
  Sex: Female

DRUGS (4)
  1. ZESTRIL [Suspect]
     Dosage: 20 MG DAILY PO
     Route: 048
  2. LOXEN [Suspect]
     Dosage: 100 MG DAILY PO
     Route: 048
  3. PROPOFOL [Concomitant]
  4. PARIET [Concomitant]

REACTIONS (4)
  - ASTHENIA [None]
  - BLOOD PRESSURE SYSTOLIC INCREASED [None]
  - COLITIS ISCHAEMIC [None]
  - HYPOTENSION [None]
